FAERS Safety Report 13425840 (Version 1)
Quarter: 2017Q2

REPORT INFORMATION
  Report Type: Spontaneous
  Country: US (occurrence: US)
  Receive Date: 20170411
  Receipt Date: 20170411
  Transmission Date: 20170830
  Serious: No
  Sender: FDA-Public Use
  Company Number: US-JNJFOC-20080405750

PATIENT
  Age: 38 Year
  Sex: Female
  Weight: 70.31 kg

DRUGS (6)
  1. FENTANYL TRANSDERMAL SYSTEM [Suspect]
     Active Substance: FENTANYL
     Indication: PAIN
     Route: 062
     Dates: start: 20080414
  2. FENTANYL TRANSDERMAL SYSTEM [Suspect]
     Active Substance: FENTANYL
     Indication: PAIN
     Route: 062
     Dates: start: 2006
  3. LYRICA [Concomitant]
     Active Substance: PREGABALIN
     Indication: PAIN
     Route: 048
  4. VICODIN [Concomitant]
     Active Substance: ACETAMINOPHEN\HYDROCODONE BITARTRATE
     Indication: PAIN
     Route: 048
  5. FENTANYL TRANSDERMAL SYSTEM [Suspect]
     Active Substance: FENTANYL
     Indication: PAIN
     Route: 062
     Dates: start: 2006, end: 20080414
  6. VALIUM [Concomitant]
     Active Substance: DIAZEPAM
     Indication: MIGRAINE
     Route: 048

REACTIONS (5)
  - Treatment noncompliance [Not Recovered/Not Resolved]
  - Migraine [Not Recovered/Not Resolved]
  - Overdose [Recovered/Resolved]
  - Muscular weakness [Unknown]
  - Neck pain [Unknown]

NARRATIVE: CASE EVENT DATE: 20080414
